FAERS Safety Report 5416488-3 (Version None)
Quarter: 2007Q3

REPORT INFORMATION
  Report Type: 
  Country: None (occurrence: None)
  Receive Date: 20070816
  Receipt Date: 20070813
  Transmission Date: 20080115
  Serious: Yes (Other)
  Sender: FDA-Public Use
  Company Number: FR-BRISTOL-MYERS SQUIBB COMPANY-13876248

PATIENT
  Sex: Female

DRUGS (3)
  1. DIDANOSINE [Suspect]
     Indication: HIV INFECTION
     Dates: start: 19961201
  2. ZIDOVUDINE [Suspect]
     Indication: HIV INFECTION
     Dates: start: 19961201
  3. NEVIRAPINE [Suspect]
     Indication: HIV INFECTION
     Dates: start: 19961201

REACTIONS (1)
  - NODULAR REGENERATIVE HYPERPLASIA [None]
